FAERS Safety Report 4970945-2 (Version None)
Quarter: 2006Q2

REPORT INFORMATION
  Report Type: 
  Country: None (occurrence: None)
  Receive Date: 20060411
  Receipt Date: 20060411
  Transmission Date: 20061013
  Serious: Yes (Other)
  Sender: FDA-Public Use
  Company Number: None

PATIENT
  Age: 78 Year
  Sex: Male
  Weight: 62.1428 kg

DRUGS (5)
  1. FLONASE [Suspect]
     Indication: NASAL CONGESTION
     Dosage: 2 SPRAYS TWICE A DAY PRN NASAL
     Route: 045
     Dates: start: 20030101, end: 20050408
  2. FLONASE [Suspect]
     Indication: SNORING
     Dosage: 2 SPRAYS TWICE A DAY PRN NASAL
     Route: 045
     Dates: start: 20030101, end: 20050408
  3. NASAREL [Suspect]
     Indication: DRUG EFFECT DECREASED
     Dosage: 2 SPRAY TWICE A DAY PRN NASAL
     Route: 045
     Dates: start: 20050101, end: 20060408
  4. NASAREL [Suspect]
     Indication: NASAL CONGESTION
     Dosage: 2 SPRAY TWICE A DAY PRN NASAL
     Route: 045
     Dates: start: 20050101, end: 20060408
  5. NASAREL [Suspect]
     Indication: SNORING
     Dosage: 2 SPRAY TWICE A DAY PRN NASAL
     Route: 045
     Dates: start: 20050101, end: 20060408

REACTIONS (3)
  - DRUG DISPENSING ERROR [None]
  - DRUG EFFECT DECREASED [None]
  - PHARMACEUTICAL PRODUCT COMPLAINT [None]
